FAERS Safety Report 21078775 (Version 1)
Quarter: 2022Q3

REPORT INFORMATION
  Report Type: Spontaneous
  Country: US (occurrence: US)
  Receive Date: 20220713
  Receipt Date: 20220713
  Transmission Date: 20221027
  Serious: No
  Sender: FDA-Public Use
  Company Number: US-SA-SAC20220708001605

PATIENT
  Sex: Male

DRUGS (14)
  1. DUPIXENT [Suspect]
     Active Substance: DUPILUMAB
     Indication: Dermatitis atopic
     Dosage: 300 MG, QOW
     Route: 058
     Dates: start: 20220415
  2. ACYCLOVIR [Concomitant]
     Active Substance: ACYCLOVIR
  3. ANASTROZOLE [Concomitant]
     Active Substance: ANASTROZOLE
  4. BACLOFEN [Concomitant]
     Active Substance: BACLOFEN
  5. CLOBETASOL [Concomitant]
     Active Substance: CLOBETASOL
  6. FLUOCINONIDE [Concomitant]
     Active Substance: FLUOCINONIDE
  7. MORPHINE SULFATE [Concomitant]
     Active Substance: MORPHINE SULFATE
  8. OMEPRAZOLE [Concomitant]
     Active Substance: OMEPRAZOLE
  9. OXYCODONE [Concomitant]
     Active Substance: OXYCODONE
  10. PIMECROLIMUS [Concomitant]
     Active Substance: PIMECROLIMUS
  11. SERTRALINE [Concomitant]
     Active Substance: SERTRALINE HYDROCHLORIDE
  12. SILDENAFIL [Concomitant]
     Active Substance: SILDENAFIL
  13. VENTOLIN HFA [Concomitant]
     Active Substance: ALBUTEROL SULFATE
  14. ZOLPIDEM [Concomitant]
     Active Substance: ZOLPIDEM TARTRATE

REACTIONS (1)
  - Dermatitis atopic [Not Recovered/Not Resolved]

NARRATIVE: CASE EVENT DATE: 20220601
